FAERS Safety Report 5849982-1 (Version None)
Quarter: 2008Q3

REPORT INFORMATION
  Report Type: 
  Country: None (occurrence: None)
  Receive Date: 20080815
  Receipt Date: 20080804
  Transmission Date: 20090109
  Serious: Yes (Hospitalization)
  Sender: FDA-Public Use
  Company Number: 2007US001352

PATIENT
  Age: 69 Year
  Sex: Female
  Weight: 104.3 kg

DRUGS (1)
  1. AMEVIVE [Suspect]
     Indication: PSORIASIS
     Dosage: 15 MG, WEEKKLY, INTRAMUSCULAR
     Route: 030
     Dates: start: 20050208, end: 20050427

REACTIONS (10)
  - ADDISON'S DISEASE [None]
  - ADRENOCORTICAL INSUFFICIENCY ACUTE [None]
  - DIARRHOEA [None]
  - DRUG INTOLERANCE [None]
  - HYPOTHYROIDISM [None]
  - ILEUS [None]
  - INFLUENZA LIKE ILLNESS [None]
  - NAUSEA [None]
  - PYREXIA [None]
  - VOMITING [None]
